FAERS Safety Report 19024678 (Version 1)
Quarter: 2021Q1

REPORT INFORMATION
  Report Type: Spontaneous
  Country: US (occurrence: US)
  Receive Date: 20210318
  Receipt Date: 20210318
  Transmission Date: 20210420
  Serious: Yes (Other)
  Sender: FDA-Public Use
  Company Number: US-PFIZER INC-2021287837

PATIENT
  Age: 12 Year
  Sex: Female

DRUGS (6)
  1. ACETYLSALICYLIC ACID [Suspect]
     Active Substance: ASPIRIN
     Indication: COVID-19
     Dosage: UNK (HIGH?DOSE)
     Dates: start: 2020
  2. IMMUNOGLOBULIN [IMMUNOGLOBULIN HUMAN NORMAL] [Suspect]
     Active Substance: HUMAN IMMUNOGLOBULIN G
     Indication: COVID-19
     Dosage: UNK (2 IGIV DOSES)
     Route: 042
     Dates: start: 2020
  3. IMMUNOGLOBULIN [IMMUNOGLOBULIN HUMAN NORMAL] [Suspect]
     Active Substance: HUMAN IMMUNOGLOBULIN G
     Indication: KAWASAKI^S DISEASE
  4. METHYLPREDNISOLONE SODIUM SUCCINATE. [Suspect]
     Active Substance: METHYLPREDNISOLONE SODIUM SUCCINATE
     Indication: KAWASAKI^S DISEASE
  5. ACETYLSALICYLIC ACID [Suspect]
     Active Substance: ASPIRIN
     Indication: KAWASAKI^S DISEASE
  6. METHYLPREDNISOLONE SODIUM SUCCINATE. [Suspect]
     Active Substance: METHYLPREDNISOLONE SODIUM SUCCINATE
     Indication: COVID-19
     Dosage: UNK
     Route: 042
     Dates: start: 2020

REACTIONS (5)
  - Palmar erythema [Unknown]
  - Therapeutic product effect incomplete [Unknown]
  - Coronary artery dilatation [Unknown]
  - Off label use [Unknown]
  - Ocular hyperaemia [Unknown]

NARRATIVE: CASE EVENT DATE: 2020
